FAERS Safety Report 20500165 (Version 2)
Quarter: 2022Q1

REPORT INFORMATION
  Report Type: Spontaneous
  Country: IT (occurrence: IT)
  Receive Date: 20220222
  Receipt Date: 20220301
  Transmission Date: 20220424
  Serious: Yes (Death)
  Sender: FDA-Public Use
  Company Number: IT-CELLTRION INC.-2022IT002076

PATIENT

DRUGS (3)
  1. RITUXIMAB [Suspect]
     Active Substance: RITUXIMAB
     Indication: Immunosuppressant drug therapy
     Route: 065
  2. METHYLPREDNISOLONE [Suspect]
     Active Substance: METHYLPREDNISOLONE
     Indication: Immunosuppressant drug therapy
     Dosage: HIGH DOSE
     Route: 065
  3. TOZINAMERAN [Concomitant]
     Active Substance: TOZINAMERAN
     Dosage: SECOND DOSE ON 28/JUN/2021

REACTIONS (2)
  - Sepsis [Fatal]
  - Off label use [Unknown]
